FAERS Safety Report 21875418 (Version 3)
Quarter: 2025Q1

REPORT INFORMATION
  Report Type: Spontaneous
  Country: US (occurrence: US)
  Receive Date: 20230118
  Receipt Date: 20250208
  Transmission Date: 20250409
  Serious: Yes (Other)
  Sender: AVEO PHARMACEUTICALS
  Company Number: US-AVEO ONCOLOGY-2023-AVEO-US000023

PATIENT

DRUGS (18)
  1. FOTIVDA [Suspect]
     Active Substance: TIVOZANIB HYDROCHLORIDE
     Indication: Renal cell carcinoma
     Dosage: 1.34 MG, DAILY FOR 21 DAYS WITH 7 DAYS OFF (28-DAY CYCLE)
     Route: 048
     Dates: start: 20221222
  2. AMLODIPINE [Concomitant]
     Active Substance: AMLODIPINE BESYLATE
  3. VITAMIN B1 [Concomitant]
     Active Substance: THIAMINE HYDROCHLORIDE
  4. COLCHICINE [Concomitant]
     Active Substance: COLCHICINE
  5. CYCLOBENZAPRINE [Concomitant]
     Active Substance: CYCLOBENZAPRINE
  6. CYMBALTA [Concomitant]
     Active Substance: DULOXETINE HYDROCHLORIDE
  7. ELIQUIS [Concomitant]
     Active Substance: APIXABAN
  8. FOLIC ACID [Concomitant]
     Active Substance: FOLIC ACID
  9. VITAMIN D3 [Concomitant]
     Active Substance: CHOLECALCIFEROL
  10. LEVOTHYROXINE [Concomitant]
     Active Substance: LEVOTHYROXINE
  11. LOMOTIL [Concomitant]
     Active Substance: ATROPINE SULFATE\DIPHENOXYLATE HYDROCHLORIDE
  12. MEGACE ES [Concomitant]
     Active Substance: MEGESTROL ACETATE
  13. METOPROLOL [Concomitant]
     Active Substance: METOPROLOL
  14. MORPHINE SULFATE [Concomitant]
     Active Substance: MORPHINE SULFATE
  15. ONDANSETRON [Concomitant]
     Active Substance: ONDANSETRON
  16. OXYCODONE [Concomitant]
     Active Substance: OXYCODONE
  17. PANTOPRAZOLE [Concomitant]
     Active Substance: PANTOPRAZOLE
  18. MAGNESIUM CHLORIDE [Concomitant]
     Active Substance: MAGNESIUM CHLORIDE

REACTIONS (6)
  - Dehydration [Unknown]
  - Dysphonia [Unknown]
  - Nausea [Unknown]
  - Lethargy [Unknown]
  - Dyspnoea [Unknown]
  - Vomiting [Unknown]
